FAERS Safety Report 9326101 (Version 3)
Quarter: 2013Q3

REPORT INFORMATION
  Report Type: Spontaneous
  Country: PT (occurrence: PT)
  Receive Date: 20130604
  Receipt Date: 20130712
  Transmission Date: 20140515
  Serious: Yes (Death)
  Sender: FDA-Public Use
  Company Number: PT-B.I. PHARMACEUTICALS,INC./RIDGEFIELD-2013-BI-15160PO

PATIENT
  Age: 74 Year
  Sex: Male

DRUGS (3)
  1. PRADAXA [Suspect]
     Indication: ATRIAL FIBRILLATION
  2. STATIN (UNSPECIFIED) [Concomitant]
  3. CLOPIDOGREL [Concomitant]

REACTIONS (3)
  - Haemorrhage [Fatal]
  - Hypovolaemic shock [Fatal]
  - Haematemesis [Fatal]
